FAERS Safety Report 5340861-5 (Version None)
Quarter: 2007Q2

REPORT INFORMATION
  Report Type: 
  Country: None (occurrence: None)
  Receive Date: 20070531
  Receipt Date: 20070523
  Transmission Date: 20071010
  Serious: Yes (Other)
  Sender: FDA-Public Use
  Company Number: FR-ABBOTT-07P-056-0362817-00

PATIENT
  Sex: Female

DRUGS (3)
  1. VALPROATE SODIUM [Suspect]
     Indication: PETIT MAL EPILEPSY
     Route: 048
     Dates: start: 20060101, end: 20070201
  2. DEPAKENE [Suspect]
     Indication: EPILEPSY
     Route: 048
     Dates: start: 19950101, end: 20061201
  3. DEPAKENE [Suspect]
     Dates: start: 20070201

REACTIONS (4)
  - FALL [None]
  - FATIGUE [None]
  - UNEVALUABLE EVENT [None]
  - WOUND [None]
